FAERS Safety Report 21239211 (Version 3)
Quarter: 2024Q2

REPORT INFORMATION
  Report Type: Report from Study
  Country: FR (occurrence: FR)
  Receive Date: 20220822
  Receipt Date: 20240605
  Transmission Date: 20240716
  Serious: No
  Sender: FDA-Public Use
  Company Number: FR-ABBVIE-22K-056-4293500-00

PATIENT
  Age: 69 Year
  Sex: Female
  Weight: 67 kg

DRUGS (26)
  1. UPADACITINIB [Suspect]
     Active Substance: UPADACITINIB
     Indication: Rheumatoid arthritis
     Dosage: 15 MILLIGRAM
     Route: 048
     Dates: start: 20210428, end: 20220512
  2. UPADACITINIB [Suspect]
     Active Substance: UPADACITINIB
     Indication: Rheumatoid arthritis
     Dosage: 15 MILLIGRAM
     Route: 048
     Dates: start: 20220522
  3. CALCIUM CARBONATE [Concomitant]
     Active Substance: CALCIUM CARBONATE
     Indication: Prophylaxis
     Dosage: 500 MILLIGRAM
     Route: 048
  4. FERROUS SULFATE [Concomitant]
     Active Substance: FERROUS SULFATE
     Indication: Prophylaxis
     Dosage: 66 MILLIGRAM
     Route: 048
     Dates: start: 20210428
  5. PREGABALIN [Concomitant]
     Active Substance: PREGABALIN
     Indication: Rheumatoid arthritis
     Dosage: 200 MILLIGRAM
     Route: 048
     Dates: start: 20220117, end: 20220513
  6. PREGABALIN [Concomitant]
     Active Substance: PREGABALIN
     Indication: Rheumatoid arthritis
     Dosage: 75 MILLIGRAM
     Route: 048
     Dates: start: 20211125, end: 20220116
  7. STEROGYL [Concomitant]
     Active Substance: ERGOCALCIFEROL
     Indication: Prophylaxis
     Dosage: 4 MG/KG/DAY
     Route: 048
     Dates: start: 20210428
  8. BUDESONIDE [Concomitant]
     Active Substance: BUDESONIDE
     Indication: Sinusitis
     Dosage: TIME INTERVAL: 0.33333333 DAYS: 1 SPRAY
     Route: 045
     Dates: start: 20220404, end: 20220411
  9. ZOPICLONE [Concomitant]
     Active Substance: ZOPICLONE
     Indication: Prophylaxis
     Dosage: 7.5 MILLIGRAM
     Route: 048
     Dates: start: 20210428
  10. ESOMEPRAZOLE [Concomitant]
     Active Substance: ESOMEPRAZOLE
     Indication: Prophylaxis
     Dosage: 40 MILLIGRAM
     Route: 048
     Dates: start: 20210428
  11. SOTALOL [Concomitant]
     Active Substance: SOTALOL
     Indication: Hypertension
     Route: 048
     Dates: start: 20210428
  12. SARS-CoV-2 vaccine [Concomitant]
     Indication: COVID-19 prophylaxis
     Dates: start: 20220524, end: 20220524
  13. SARS-CoV-2 vaccine [Concomitant]
     Indication: COVID-19 prophylaxis
     Dates: start: 20210517, end: 20210517
  14. MOVICOL [Concomitant]
     Active Substance: POLYETHYLENE GLYCOL 3350\POTASSIUM CHLORIDE\SODIUM BICARBONATE\SODIUM CHLORIDE
     Indication: Prophylaxis
     Route: 048
  15. BCG VACCINE [Concomitant]
     Active Substance: BCG VACCINE
     Indication: Product used for unknown indication
  16. CLARITHROMYCIN [Concomitant]
     Active Substance: CLARITHROMYCIN
     Indication: Sinusitis
     Route: 048
     Dates: start: 20220620, end: 20220624
  17. BILASTINE [Concomitant]
     Active Substance: BILASTINE
     Indication: Sinusitis
     Dosage: 20 MILLIGRAM
     Route: 048
     Dates: start: 20220620
  18. BILASTINE [Concomitant]
     Active Substance: BILASTINE
     Indication: Sinusitis
     Dosage: 20 MILLIGRAM
     Route: 048
     Dates: start: 20220620
  19. NAPHAZOLINE [Concomitant]
     Active Substance: NAPHAZOLINE\NAPHAZOLINE HYDROCHLORIDE
     Indication: Sinusitis
     Dosage: TIME INTERVAL: 0.33333333 DAYS: 1 PULVERISATION
     Route: 045
     Dates: start: 20220620, end: 20220620
  20. PRISTINAMYCIN [Concomitant]
     Active Substance: PRISTINAMYCIN
     Indication: Sinusitis
     Route: 048
     Dates: start: 20220404, end: 20220411
  21. COLCHICINE [Concomitant]
     Active Substance: COLCHICINE
     Indication: Rheumatoid arthritis
     Dosage: 1 MILLIGRAM
     Route: 048
     Dates: start: 20210428
  22. PREDNISOLONE [Concomitant]
     Active Substance: PREDNISOLONE
     Indication: Sinusitis
     Dosage: 60 MILLIGRAM
     Route: 048
     Dates: start: 20210611, end: 20210615
  23. PREDNISOLONE [Concomitant]
     Active Substance: PREDNISOLONE
     Indication: Sinusitis
     Dosage: TIME INTERVAL: 0.33333333 DAYS: 1 SPRAY
     Route: 045
     Dates: start: 20220620, end: 20220626
  24. PREDNISOLONE [Concomitant]
     Active Substance: PREDNISOLONE
     Indication: Sinusitis
     Route: 045
     Dates: start: 20220620, end: 20220628
  25. PREDNISOLONE [Concomitant]
     Active Substance: PREDNISOLONE
     Indication: Sinusitis
     Dosage: 60 MILLIGRAM
     Route: 048
     Dates: start: 20220404, end: 20220411
  26. RHINOCORT [Concomitant]
     Active Substance: BUDESONIDE
     Indication: Sinusitis
     Dosage: TIME INTERVAL: 0.33333333 YEARS: 1 INSTILLATION
     Route: 045
     Dates: start: 20220404, end: 20220411

REACTIONS (5)
  - Sinus disorder [Recovered/Resolved]
  - Sinusitis [Not Recovered/Not Resolved]
  - Sinusitis [Recovered/Resolved]
  - Sinusitis [Recovered/Resolved]
  - Sinusitis [Recovered/Resolved]

NARRATIVE: CASE EVENT DATE: 20210611
